FAERS Safety Report 22773421 (Version 4)
Quarter: 2024Q1

REPORT INFORMATION
  Report Type: Spontaneous
  Country: US (occurrence: US)
  Receive Date: 20230801
  Receipt Date: 20240105
  Transmission Date: 20240410
  Serious: Yes (Other)
  Sender: FDA-Public Use
  Company Number: US-PFIZER INC-PV202300124139

PATIENT
  Age: 70 Year
  Sex: Female
  Weight: 75.75 kg

DRUGS (6)
  1. BRAFTOVI [Suspect]
     Active Substance: ENCORAFENIB
     Indication: Colon cancer
     Dosage: 300 MG, DAILY
     Dates: start: 20230719
  2. BRAFTOVI [Suspect]
     Active Substance: ENCORAFENIB
     Dosage: 300 MG, DAILY
     Route: 048
     Dates: start: 202309
  3. BRAFTOVI [Suspect]
     Active Substance: ENCORAFENIB
     Dosage: 1200 MG, 1X/DAY
     Route: 048
     Dates: start: 2023
  4. BRAFTOVI [Suspect]
     Active Substance: ENCORAFENIB
     Dosage: 900 MG, 1X/DAY
     Route: 048
     Dates: start: 2023
  5. BRAFTOVI [Suspect]
     Active Substance: ENCORAFENIB
     Dosage: 3 CAPSULE DAILY (TAKE WHOLE WITH OR WITHOUT FOOD)
     Route: 048
  6. PANITUMUMAB [Suspect]
     Active Substance: PANITUMUMAB
     Indication: Colon cancer stage II
     Dosage: UNK
     Dates: start: 20230719

REACTIONS (7)
  - Blood magnesium decreased [Unknown]
  - Weight decreased [Unknown]
  - Dizziness [Unknown]
  - Illness [Unknown]
  - Nausea [Unknown]
  - Vomiting [Unknown]
  - Off label use [Unknown]

NARRATIVE: CASE EVENT DATE: 20230101
